FAERS Safety Report 4940344-8 (Version None)
Quarter: 2006Q1

REPORT INFORMATION
  Report Type: 
  Country: None (occurrence: None)
  Receive Date: 20060310
  Receipt Date: 20050919
  Transmission Date: 20060701
  Serious: Yes (Hospitalization, Disabling, Other)
  Sender: FDA-Public Use
  Company Number: US-MERCK-0509USA02840

PATIENT
  Age: 53 Year
  Sex: Female
  Weight: 132 kg

DRUGS (26)
  1. VIOXX [Suspect]
     Indication: MONARTHRITIS
     Route: 048
     Dates: start: 20001001, end: 20041001
  2. VIOXX [Suspect]
     Route: 048
     Dates: start: 20001001, end: 20041001
  3. VIOXX [Suspect]
     Route: 048
     Dates: start: 20001001, end: 20041001
  4. VIOXX [Suspect]
     Indication: BACK PAIN
     Route: 048
     Dates: start: 20001001, end: 20041001
  5. VIOXX [Suspect]
     Route: 048
     Dates: start: 20001001, end: 20041001
  6. VIOXX [Suspect]
     Route: 048
     Dates: start: 20001001, end: 20041001
  7. BEXTRA [Suspect]
     Route: 065
  8. CELEBREX [Suspect]
     Route: 065
  9. LISINOPRIL [Concomitant]
     Route: 065
  10. ACCUPRIL [Concomitant]
     Route: 065
  11. HYDROCHLOROTHIAZIDE [Concomitant]
     Route: 065
  12. HYDROCHLOROTHIAZIDE [Concomitant]
     Route: 065
  13. ZOLOFT [Concomitant]
     Route: 065
     Dates: start: 20010101, end: 20041101
  14. LIPITOR [Concomitant]
     Route: 065
  15. PROVERA [Concomitant]
     Indication: ENDOMETRIAL DYSPLASIA
     Route: 065
  16. AMIODARONE [Concomitant]
     Indication: ATRIAL FIBRILLATION
     Route: 065
     Dates: end: 20041101
  17. COUMADIN [Concomitant]
     Route: 065
  18. ASPIRIN [Concomitant]
     Indication: HYPERTENSION
     Route: 065
  19. ASPIRIN [Concomitant]
     Indication: CARDIAC FAILURE CONGESTIVE
     Route: 065
  20. ALTACE [Concomitant]
     Indication: HYPERTENSION
     Route: 065
  21. FLONASE [Concomitant]
     Route: 065
  22. PRILOSEC [Concomitant]
     Indication: GASTROOESOPHAGEAL REFLUX DISEASE
     Route: 048
  23. FLOVENT [Concomitant]
     Indication: ASTHMA
     Route: 065
     Dates: end: 20041201
  24. LASIX [Concomitant]
     Indication: OEDEMA
     Route: 065
  25. CARDIZEM [Concomitant]
     Indication: HYPERTENSION
     Route: 065
  26. POTASSIUM CHLORIDE [Concomitant]
     Indication: HYPERTENSION
     Route: 065

REACTIONS (29)
  - ACETABULUM FRACTURE [None]
  - ANXIETY [None]
  - ARRHYTHMIA [None]
  - ASTHMA [None]
  - ATRIAL FIBRILLATION [None]
  - CARDIAC FAILURE [None]
  - CARDIAC FAILURE CONGESTIVE [None]
  - CARDIAC MURMUR [None]
  - CEREBROVASCULAR ACCIDENT [None]
  - CHEST PAIN [None]
  - CONCUSSION [None]
  - DEPRESSION [None]
  - DIABETES MELLITUS NON-INSULIN-DEPENDENT [None]
  - DYSFUNCTIONAL UTERINE BLEEDING [None]
  - DYSPNOEA [None]
  - GASTROOESOPHAGEAL REFLUX DISEASE [None]
  - HEPATOCELLULAR DAMAGE [None]
  - HYPERTENSION [None]
  - INJURY [None]
  - MYOCARDIAL INFARCTION [None]
  - OBESITY [None]
  - OEDEMA [None]
  - OSTEOARTHRITIS [None]
  - PALPITATIONS [None]
  - RENAL DISORDER [None]
  - SKIN INJURY [None]
  - SLEEP APNOEA SYNDROME [None]
  - THROMBOSIS [None]
  - ULCER [None]
